FAERS Safety Report 8555633-8 (Version None)
Quarter: 2012Q3

REPORT INFORMATION
  Report Type: 
  Country: None (occurrence: None)
  Receive Date: 20120731
  Receipt Date: 20120717
  Transmission Date: 20120928
  Serious: No
  Sender: FDA-Public Use
  Company Number: US-ELI_LILLY_AND_COMPANY-US201207005593

PATIENT
  Sex: Female

DRUGS (4)
  1. AMBIEN [Concomitant]
  2. CYMBALTA [Suspect]
     Dosage: 30 MG, QD
     Route: 065
  3. OXYCODONE HCL [Concomitant]
  4. CYMBALTA [Suspect]
     Indication: DEPRESSION
     Dosage: 90 MG, QD

REACTIONS (6)
  - HEPATIC ENZYME INCREASED [None]
  - DEPRESSED MOOD [None]
  - SLEEP DISORDER [None]
  - DRUG INEFFECTIVE [None]
  - ABDOMINAL PAIN [None]
  - PAIN [None]
